FAERS Safety Report 15736058 (Version 1)
Quarter: 2018Q4

REPORT INFORMATION
  Report Type: Spontaneous
  Country: PT (occurrence: PT)
  Receive Date: 20181218
  Receipt Date: 20181218
  Transmission Date: 20190205
  Serious: Yes (Life-Threatening, Hospitalization, Other)
  Sender: FDA-Public Use
  Company Number: PT-TEVA-2018-PT-987254

PATIENT
  Age: 66 Year
  Sex: Female
  Weight: 60 kg

DRUGS (1)
  1. MEPHAQUIN LACTAB [Suspect]
     Active Substance: MEFLOQUINE HYDROCHLORIDE
     Indication: PROPHYLAXIS
     Dosage: 250 MILLIGRAM DAILY;
     Route: 048
     Dates: start: 20180926, end: 20181010

REACTIONS (13)
  - Mental disorder [Recovering/Resolving]
  - Screaming [Recovering/Resolving]
  - Apathy [Recovering/Resolving]
  - Anxiety [Recovering/Resolving]
  - Anxiety [Recovering/Resolving]
  - Suicide attempt [Recovering/Resolving]
  - Persecutory delusion [Recovering/Resolving]
  - Psychotic disorder [Recovering/Resolving]
  - Agitation [Recovering/Resolving]
  - Hallucination, visual [Recovering/Resolving]
  - Aggression [Recovering/Resolving]
  - Delusion [Recovering/Resolving]
  - Suspiciousness [Recovering/Resolving]

NARRATIVE: CASE EVENT DATE: 20181011
